FAERS Safety Report 25540213 (Version 1)
Quarter: 2025Q3

REPORT INFORMATION
  Report Type: Spontaneous
  Country: EU (occurrence: EU)
  Receive Date: 20250710
  Receipt Date: 20250710
  Transmission Date: 20251021
  Serious: Yes (Other)
  Sender: ABBVIE
  Company Number: None

PATIENT
  Age: 25 Year
  Sex: Female

DRUGS (6)
  1. RITONAVIR [Suspect]
     Active Substance: RITONAVIR
     Indication: HIV infection
     Route: 065
     Dates: start: 20151101
  2. DOLUTEGRAVIR [Suspect]
     Active Substance: DOLUTEGRAVIR
     Indication: HIV infection
     Route: 050
     Dates: start: 20160101
  3. MARAVIROC [Suspect]
     Active Substance: MARAVIROC
     Indication: HIV infection
     Route: 065
     Dates: start: 20151101
  4. RALTEGRAVIR [Suspect]
     Active Substance: RALTEGRAVIR
     Indication: HIV infection
     Route: 065
  5. DARUNAVIR [Suspect]
     Active Substance: DARUNAVIR
     Indication: HIV infection
     Route: 065
     Dates: start: 20151101
  6. TENOFOVIR DISOPROXIL FUMARATE [Suspect]
     Active Substance: TENOFOVIR DISOPROXIL FUMARATE
     Indication: HIV infection
     Route: 065
     Dates: start: 20151101

REACTIONS (5)
  - Antiviral drug level below therapeutic [Not Recovered/Not Resolved]
  - Maternal exposure during pregnancy [Unknown]
  - Live birth [Unknown]
  - Drug ineffective [Unknown]
  - Drug resistance [Not Recovered/Not Resolved]

NARRATIVE: CASE EVENT DATE: 20160401
